FAERS Safety Report 8500392-8 (Version None)
Quarter: 2012Q3

REPORT INFORMATION
  Report Type: 
  Country: None (occurrence: None)
  Receive Date: 20120705
  Receipt Date: 20120705
  Transmission Date: 20120928
  Serious: Yes (Hospitalization)
  Sender: FDA-Public Use
  Company Number: None

PATIENT
  Age: 85 Year
  Sex: Female
  Weight: 75 kg

DRUGS (6)
  1. ASCORBIC ACID [Concomitant]
  2. METOPROLOL TARTRATE [Concomitant]
  3. WARFARIN SODIUM [Suspect]
     Indication: ATRIAL FIBRILLATION
     Dosage: 6 MG 6X/WK ALT WITH 4 MG 1X/WK PO PRIOR TO ADMIT
     Route: 048
  4. DIGOXIN [Concomitant]
  5. CALCIUM + VITAMIN D [Concomitant]
  6. MULTI-VITAMIN [Concomitant]

REACTIONS (3)
  - HAEMORRHAGE INTRACRANIAL [None]
  - ASTHENIA [None]
  - DIZZINESS [None]
